FAERS Safety Report 7576398-2 (Version None)
Quarter: 2011Q2

REPORT INFORMATION
  Report Type: 
  Country: None (occurrence: None)
  Receive Date: 20110628
  Receipt Date: 20090930
  Transmission Date: 20111010
  Serious: Yes (Death, Other)
  Sender: FDA-Public Use
  Company Number: US-BAYER-200934537NA

PATIENT
  Age: 82 Year
  Sex: Female
  Weight: 65 kg

DRUGS (26)
  1. HYDROCHLOROTHIAZIDE [Concomitant]
     Dosage: 12.5 MG, BID (USED FOR YEARS)
     Route: 048
  2. FENTANYL [Concomitant]
     Dosage: 900 MG, UNK
     Route: 042
     Dates: start: 20050708, end: 20050708
  3. DOBUTAMINE HCL [Concomitant]
     Dosage: UNK, MG/KG/MIN
     Route: 042
     Dates: start: 20050708, end: 20050708
  4. FORANE [Concomitant]
     Dosage: 0.1-0.8 UNK (INHALATION)
     Route: 055
     Dates: start: 20050708, end: 20050708
  5. PLATELETS [Concomitant]
     Dosage: 3 U, UNK
     Route: 042
     Dates: start: 20050708, end: 20050708
  6. NORVASC [Concomitant]
     Dosage: (USED FOR YEARS)
     Route: 048
  7. ETOMIDATE [Concomitant]
     Dosage: UNK
     Route: 042
     Dates: start: 20050708, end: 20050708
  8. RED BLOOD CELLS [Concomitant]
     Dosage: 600 ML, (CARDIOPULMONARY BYPASS PRIME)
     Dates: start: 20050708, end: 20050708
  9. TRASYLOL [Suspect]
     Dosage: 50 ML/HR (INFUSION)
     Route: 042
     Dates: start: 20050708, end: 20050708
  10. NITROGLYCERIN [Concomitant]
     Dosage: UNK
     Route: 042
     Dates: start: 20050708, end: 20050708
  11. ALBUMIN (HUMAN) [Concomitant]
     Dosage: 1500 ML, (CARDIOPULMONARY BYPASS PUMP)
     Dates: start: 20050708, end: 20050708
  12. FRESH FROZEN PLASMA [Concomitant]
     Dosage: 4 U, UNK
     Route: 042
     Dates: start: 20050708, end: 20050708
  13. TRASYLOL [Suspect]
     Indication: PRODUCT USED FOR UNKNOWN INDICATION
     Dosage: 200 ML (CARDIOPULMONARY BYPASS PRIME)
     Route: 042
     Dates: start: 20050708, end: 20050708
  14. ANCEF [Concomitant]
     Dosage: 1 G, UNK
     Route: 042
     Dates: start: 20050708, end: 20050711
  15. PHENYLEPHRINE HCL [Concomitant]
     Dosage: 100 UNK
     Route: 042
     Dates: start: 20050708, end: 20050715
  16. MILRINONE [Concomitant]
     Dosage: 0.4-0.5 MCG/KG/MIN
     Route: 042
     Dates: start: 20050708, end: 20050708
  17. RED BLOOD CELLS [Concomitant]
     Dosage: 3 U, UNK
     Route: 042
     Dates: start: 20050708, end: 20050708
  18. ISOSORBIDE [Concomitant]
     Dosage: UNK (USED FOR YEARS)
     Route: 048
  19. EPINEPHRINE [Concomitant]
     Dosage: 0.1 MG/KG/MIN
     Route: 042
     Dates: start: 20050708, end: 20050715
  20. SODIUM BICARBONATE [Concomitant]
     Dosage: 50 MEQ, (CARDIOPULMONARY BYPASS PUMP)
     Dates: start: 20050708, end: 20050708
  21. ENALAPRIL MALEATE [Concomitant]
     Dosage: 20 MG, BID
     Route: 048
  22. ANCEF [Concomitant]
     Dosage: 1000 MG, (CARDIOPULMONARY BYPASS PUMP)
     Dates: start: 20050708, end: 20050708
  23. CALCIUM CHLORIDE [Concomitant]
     Dosage: 600 MG, UNK
     Route: 042
     Dates: start: 20050708, end: 20050708
  24. PAVULON [Concomitant]
     Dosage: 12 MG, UNK
     Route: 042
     Dates: start: 20050708, end: 20050708
  25. VERSED [Concomitant]
     Dosage: 5 MG, UNK
     Route: 042
     Dates: start: 20050708, end: 20050708
  26. HEPARIN [Concomitant]
     Dosage: 35000 U, (CARDIOPULMONARY BYPASS PUMP)
     Dates: start: 20050708, end: 20050708

REACTIONS (13)
  - RENAL INJURY [None]
  - MULTI-ORGAN FAILURE [None]
  - FEAR [None]
  - RENAL IMPAIRMENT [None]
  - CEREBROVASCULAR ACCIDENT [None]
  - PAIN [None]
  - DEATH [None]
  - ANXIETY [None]
  - RENAL FAILURE [None]
  - UNEVALUABLE EVENT [None]
  - EMOTIONAL DISTRESS [None]
  - STRESS [None]
  - INJURY [None]
